FAERS Safety Report 7992268-X (Version None)
Quarter: 2011Q4

REPORT INFORMATION
  Report Type: 
  Country: None (occurrence: None)
  Receive Date: 20111219
  Receipt Date: 20110217
  Transmission Date: 20120403
  Serious: No
  Sender: FDA-Public Use
  Company Number: US-ASTRAZENECA-2010SE03396

PATIENT
  Age: 74 Year
  Sex: Female
  Weight: 86.2 kg

DRUGS (7)
  1. SPIRIVA [Concomitant]
  2. CRESTOR [Suspect]
     Route: 048
  3. ASPIRIN [Concomitant]
  4. FISH OIL [Concomitant]
  5. NATURES BOUNTY BIOTIN [Concomitant]
  6. DAILY VITAMIN [Concomitant]
  7. PREMARIN [Concomitant]

REACTIONS (5)
  - ALOPECIA [None]
  - BLOOD CHOLESTEROL INCREASED [None]
  - DRY SKIN [None]
  - ONYCHOCLASIS [None]
  - DRUG DOSE OMISSION [None]
